FAERS Safety Report 10501908 (Version 1)
Quarter: 2014Q4

REPORT INFORMATION
  Report Type: Spontaneous
  Country: US (occurrence: None)
  Receive Date: 20141003
  Receipt Date: 20141003
  Transmission Date: 20150528
  Serious: Yes (Other)
  Sender: FDA-Public Use
  Company Number: VAL_03417_2014

PATIENT
  Age: 20 Year
  Sex: Female

DRUGS (1)
  1. CALCITROL [Suspect]
     Active Substance: CALCITRIOL
     Indication: PRODUCT USED FOR UNKNOWN INDICATION
     Route: 048

REACTIONS (17)
  - Tremor [None]
  - Hypertension [None]
  - Renal impairment [None]
  - Hypercalcaemia [None]
  - Alopecia [None]
  - Nausea [None]
  - Polyuria [None]
  - Insomnia [None]
  - Vomiting [None]
  - Anaemia [None]
  - Dehydration [None]
  - Tachycardia [None]
  - Weight decreased [None]
  - Eye disorder [None]
  - Thirst [None]
  - Nephrogenic diabetes insipidus [None]
  - Treatment noncompliance [None]
